FAERS Safety Report 16663086 (Version 1)
Quarter: 2019Q3

REPORT INFORMATION
  Report Type: Report from Study
  Country: US (occurrence: US)
  Receive Date: 20190802
  Receipt Date: 20190802
  Transmission Date: 20191004
  Serious: No
  Sender: FDA-Public Use
  Company Number: US-EXELIXIS-CABO-19020366

PATIENT
  Age: 60 Year
  Sex: Female

DRUGS (12)
  1. CABOMETYX [Suspect]
     Active Substance: CABOZANTINIB S-MALATE
     Dosage: 40 MG, QD
     Route: 048
     Dates: start: 201904
  2. TACROLIMUS. [Concomitant]
     Active Substance: TACROLIMUS
  3. LEVETIRACETAM. [Concomitant]
     Active Substance: LEVETIRACETAM
  4. ASPIRIN. [Concomitant]
     Active Substance: ASPIRIN
  5. GERI-KOT [Concomitant]
     Active Substance: SENNOSIDES
  6. CABOMETYX [Suspect]
     Active Substance: CABOZANTINIB S-MALATE
     Indication: RENAL CANCER
     Dosage: 60 MG, QD
     Route: 048
     Dates: start: 20181218
  7. METHADONE HCL [Concomitant]
     Active Substance: METHADONE HYDROCHLORIDE
  8. CALCIUM+D [Concomitant]
     Active Substance: CALCIUM\VITAMIN D
  9. SENNA [Concomitant]
     Active Substance: SENNA LEAF\SENNOSIDES\SENNOSIDES A AND B
  10. MIRTAZAPINE. [Concomitant]
     Active Substance: MIRTAZAPINE
  11. LEVOTHYROXINE SODIUM. [Concomitant]
     Active Substance: LEVOTHYROXINE SODIUM
  12. ALLOPURINOL. [Concomitant]
     Active Substance: ALLOPURINOL

REACTIONS (4)
  - Hypomagnesaemia [Unknown]
  - Hypoalbuminaemia [Unknown]
  - Hypokalaemia [Unknown]
  - Generalised oedema [Unknown]

NARRATIVE: CASE EVENT DATE: 20190410
